FAERS Safety Report 5741405-6 (Version None)
Quarter: 2008Q2

REPORT INFORMATION
  Report Type: 
  Country: None (occurrence: None)
  Receive Date: 20080514
  Receipt Date: 20080429
  Transmission Date: 20081010
  Serious: Yes (Hospitalization)
  Sender: FDA-Public Use
  Company Number: 2008S1008002

PATIENT
  Age: 62 Year
  Sex: Male

DRUGS (4)
  1. NEBIVOLOL HCL [Suspect]
     Indication: ESSENTIAL HYPERTENSION
     Dosage: ORAL
     Route: 048
     Dates: start: 20070406
  2. TRAZODONE HYDROCHLORIDE [Suspect]
     Indication: DEPRESSION
     Dosage: ORAL
     Route: 048
     Dates: start: 20000222, end: 20080311
  3. SORTIS /01326101/ [Concomitant]
  4. EFFEXOR [Suspect]
     Indication: DEPRESSION
     Dosage: ORAL
     Route: 048
     Dates: start: 20080222

REACTIONS (2)
  - SYNCOPE [None]
  - TREMOR [None]
